FAERS Safety Report 8393993-1 (Version None)
Quarter: 2012Q2

REPORT INFORMATION
  Report Type: 
  Country: None (occurrence: None)
  Receive Date: 20120530
  Receipt Date: 20120524
  Transmission Date: 20120825
  Serious: Yes (Other)
  Sender: FDA-Public Use
  Company Number: US-AMGEN-USASP2012032915

PATIENT
  Age: 56 Year
  Sex: Female
  Weight: 68.027 kg

DRUGS (5)
  1. CELEXA [Suspect]
     Indication: PRODUCT USED FOR UNKNOWN INDICATION
     Dosage: UNK
  2. PROLIA [Suspect]
     Indication: OSTEOPOROSIS
     Dosage: UNK
     Dates: start: 20110901, end: 20120401
  3. NEXIUM [Suspect]
     Indication: GASTROOESOPHAGEAL REFLUX DISEASE
     Dosage: 40 MG, UNK
     Route: 048
     Dates: start: 20040101
  4. HYDROCODONE BITARTRATE [Suspect]
     Indication: BACK PAIN
     Dosage: UNK
  5. LISINOPRIL [Concomitant]
     Indication: BLOOD PRESSURE ABNORMAL
     Dosage: 20 MG, UNK
     Dates: start: 20040101

REACTIONS (11)
  - OSTEOPOROSIS [None]
  - KNEE ARTHROPLASTY [None]
  - DRUG INTOLERANCE [None]
  - GAIT DISTURBANCE [None]
  - WEIGHT INCREASED [None]
  - GASTRIC DISORDER [None]
  - BACK PAIN [None]
  - HEARING IMPAIRED [None]
  - INTERVERTEBRAL DISC DEGENERATION [None]
  - DRUG INEFFECTIVE [None]
  - INTERVERTEBRAL DISC PROTRUSION [None]
